FAERS Safety Report 25668318 (Version 2)
Quarter: 2025Q3

REPORT INFORMATION
  Report Type: Spontaneous
  Country: EU (occurrence: EU)
  Receive Date: 20250812
  Receipt Date: 20250829
  Transmission Date: 20251020
  Serious: Yes (Other)
  Sender: BAUSCH AND LOMB
  Company Number: EU-BAUSCH-BH-2025-015895

PATIENT
  Age: 6 Decade
  Sex: Female

DRUGS (3)
  1. METFORMIN HYDROCHLORIDE [Suspect]
     Active Substance: METFORMIN HYDROCHLORIDE
     Indication: Product used for unknown indication
     Route: 065
     Dates: start: 1999, end: 2001
  2. BISOPROLOL FUMARATE [Suspect]
     Active Substance: BISOPROLOL FUMARATE
     Indication: Product used for unknown indication
     Route: 065
     Dates: start: 1999, end: 2001
  3. AMLODIPINE BESYLATE\HYDROCHLOROTHIAZIDE\VALSARTAN [Suspect]
     Active Substance: AMLODIPINE BESYLATE\HYDROCHLOROTHIAZIDE\VALSARTAN
     Indication: Product used for unknown indication
     Dosage: AMLODIPINE/VALSARTAN/HYDROCHLOROTHIAZIDE 5/160/12.5 MG ONCE IN THE EVENING SINCE 2022 (PRIOR TO THE
     Route: 065
     Dates: start: 2022

REACTIONS (1)
  - Basal cell carcinoma [Recovered/Resolved]
